FAERS Safety Report 20697275 (Version 1)
Quarter: 2022Q2

REPORT INFORMATION
  Report Type: Spontaneous
  Country: US (occurrence: US)
  Receive Date: 20220411
  Receipt Date: 20220411
  Transmission Date: 20220721
  Serious: No
  Sender: FDA-Public Use
  Company Number: US-PFIZER INC-2021685155

PATIENT
  Age: 56 Year
  Sex: Female

DRUGS (3)
  1. INLYTA [Suspect]
     Active Substance: AXITINIB
     Dosage: 5 MG
     Dates: start: 20210520, end: 20210610
  2. INLYTA [Suspect]
     Active Substance: AXITINIB
     Dosage: 5 MG
     Dates: start: 20210524
  3. INLYTA [Suspect]
     Active Substance: AXITINIB
     Dosage: 5 MG
     Dates: start: 20210601, end: 20210610

REACTIONS (11)
  - Fatigue [Not Recovered/Not Resolved]
  - Oropharyngeal pain [Unknown]
  - Blood pressure increased [Unknown]
  - Heart rate increased [Unknown]
  - Headache [Not Recovered/Not Resolved]
  - Hyperaesthesia [Unknown]
  - Oral pain [Unknown]
  - Dysphagia [Unknown]
  - Arthralgia [Unknown]
  - Neck pain [Unknown]
  - Mucosal inflammation [Unknown]

NARRATIVE: CASE EVENT DATE: 20210101
